FAERS Safety Report 7313391-9 (Version None)
Quarter: 2011Q1

REPORT INFORMATION
  Report Type: 
  Country: None (occurrence: None)
  Receive Date: 20110225
  Receipt Date: 20110218
  Transmission Date: 20110831
  Serious: No
  Sender: FDA-Public Use
  Company Number: US-PFIZER INC-2011036853

PATIENT
  Sex: Female

DRUGS (2)
  1. ISOPTIN [Suspect]
  2. VERAPAMIL HCL [Suspect]

REACTIONS (1)
  - MALAISE [None]
